FAERS Safety Report 9051445 (Version 1)
Quarter: 2013Q1

REPORT INFORMATION
  Report Type: Spontaneous
  Country: US (occurrence: US)
  Receive Date: 20130206
  Receipt Date: 20130206
  Transmission Date: 20140127
  Serious: No
  Sender: FDA-Public Use
  Company Number: US-ALLERGAN-1210799US

PATIENT
  Age: 60 Year
  Sex: Female

DRUGS (2)
  1. RESTASIS [Suspect]
     Indication: CORNEAL EROSION
     Dosage: 2 GTT, BID
     Route: 047
     Dates: start: 20120731
  2. LEVOTHYROXINE [Concomitant]
     Indication: GOITRE
     Dosage: UNK

REACTIONS (6)
  - Off label use [Unknown]
  - Hypoaesthesia eye [Recovered/Resolved]
  - Hypoaesthesia eye [Recovered/Resolved]
  - Tooth deposit [Not Recovered/Not Resolved]
  - Ocular hyperaemia [Recovering/Resolving]
  - Vision blurred [Recovering/Resolving]
